FAERS Safety Report 8573881-8 (Version None)
Quarter: 2012Q3

REPORT INFORMATION
  Report Type: 
  Country: None (occurrence: None)
  Receive Date: 20120806
  Receipt Date: 20120313
  Transmission Date: 20120928
  Serious: No
  Sender: FDA-Public Use
  Company Number: US-GLAXOSMITHKLINE-A0969664A

PATIENT
  Age: 47 Year
  Sex: Female

DRUGS (7)
  1. FLUTICASONE PROPIONATE [Suspect]
     Indication: ASTHMA
     Dosage: 2PUFF TWICE PER DAY
     Route: 055
     Dates: start: 20111101
  2. SINGULAIR [Concomitant]
  3. XOPENEX [Concomitant]
     Route: 055
  4. LOSARTAN POTASSIUM [Concomitant]
  5. XOPENEX NEBULES [Concomitant]
  6. ZYRTEC [Concomitant]
  7. CRESTOR [Concomitant]

REACTIONS (4)
  - HUNGER [None]
  - BLOOD CHOLESTEROL INCREASED [None]
  - WEIGHT INCREASED [None]
  - EATING DISORDER [None]
